FAERS Safety Report 16109713 (Version 1)
Quarter: 2019Q1

REPORT INFORMATION
  Report Type: Spontaneous
  Country: ES (occurrence: ES)
  Receive Date: 20190325
  Receipt Date: 20190325
  Transmission Date: 20190418
  Serious: Yes (Other)
  Sender: FDA-Public Use
  Company Number: ES-TEVA-2019-ES-1027465

PATIENT
  Age: 65 Year
  Sex: Male
  Weight: 75 kg

DRUGS (3)
  1. VALSART?N + HIDROCLOROTIAZIDA [Suspect]
     Active Substance: HYDROCHLOROTHIAZIDE\VALSARTAN
     Indication: HYPERTENSION
     Dosage: .5 DOSAGE FORMS DAILY; 0,5/24 H.
     Dates: start: 20170401, end: 20181202
  2. TAMSULOSINA 0,4 MG 30 C?PSULAS LIBERACI?N MODIFICADA [Concomitant]
     Indication: BENIGN PROSTATIC HYPERPLASIA
     Dosage: .4 MILLIGRAM DAILY; 1/24 H.
     Dates: start: 20170101
  3. DOLOCATIL [Concomitant]
     Active Substance: ACETAMINOPHEN
     Indication: PAIN

REACTIONS (6)
  - Musculoskeletal discomfort [Recovered/Resolved]
  - Dry eye [Recovered/Resolved]
  - Pruritus generalised [Recovered/Resolved]
  - Myalgia [Recovered/Resolved]
  - Eye pruritus [Recovered/Resolved]
  - Fatigue [Recovered/Resolved]

NARRATIVE: CASE EVENT DATE: 20170410
